FAERS Safety Report 9086788 (Version 1)
Quarter: 2013Q1

REPORT INFORMATION
  Report Type: Report from Study
  Country: US (occurrence: US)
  Receive Date: 20130131
  Receipt Date: 20130131
  Transmission Date: 20140127
  Serious: No
  Sender: FDA-Public Use
  Company Number: US-ABBOTT-12P-163-0996692-00

PATIENT
  Sex: Female
  Weight: 90.8 kg

DRUGS (13)
  1. HUMIRA [Suspect]
     Indication: PSORIATIC ARTHROPATHY
     Dates: start: 201002, end: 201008
  2. HUMIRA [Suspect]
     Dates: start: 201203, end: 201206
  3. METHOTREXATE [Concomitant]
     Indication: PSORIATIC ARTHROPATHY
     Dates: start: 2012, end: 201206
  4. VERAPAMIL [Concomitant]
     Indication: HYPERTENSION
  5. VITAMIN D [Concomitant]
     Indication: MEDICAL DIET
  6. ZOLOFT [Concomitant]
     Indication: DEPRESSION
  7. CARVEDILOL [Concomitant]
     Indication: HYPERTENSION
  8. PRAMIPEXOLE [Concomitant]
     Indication: RESTLESS LEGS SYNDROME
  9. FOLIC ACID [Concomitant]
     Indication: PSORIATIC ARTHROPATHY
  10. VALTREX [Concomitant]
     Indication: ORAL HERPES
  11. ENDOCET [Concomitant]
     Indication: PAIN
  12. TIZANIDANE [Concomitant]
     Indication: PAIN
  13. CLARITIN [Concomitant]
     Indication: HYPERSENSITIVITY

REACTIONS (1)
  - Drug ineffective [Not Recovered/Not Resolved]
